FAERS Safety Report 8455654-X (Version None)
Quarter: 2012Q2

REPORT INFORMATION
  Report Type: 
  Country: None (occurrence: None)
  Receive Date: 20120621
  Receipt Date: 20120615
  Transmission Date: 20120825
  Serious: No
  Sender: FDA-Public Use
  Company Number: US-BAYER-2012-060343

PATIENT
  Age: 49 Year
  Sex: Female
  Weight: 77 kg

DRUGS (4)
  1. ZOCOR [Concomitant]
  2. ALEVE (CAPLET) [Suspect]
     Indication: ARTHRALGIA
     Dosage: UNK
     Route: 048
     Dates: start: 20120615
  3. LISINOPRIL [Concomitant]
  4. BUPROPION HCL [Concomitant]

REACTIONS (4)
  - EYE SWELLING [None]
  - LIP SWELLING [None]
  - EYE PRURITUS [None]
  - SWELLING FACE [None]
